FAERS Safety Report 19679836 (Version 1)
Quarter: 2021Q3

REPORT INFORMATION
  Report Type: Spontaneous
  Country: CN (occurrence: CN)
  Receive Date: 20210809
  Receipt Date: 20210809
  Transmission Date: 20211014
  Serious: Yes (Other)
  Sender: FDA-Public Use
  Company Number: CN-BAXTER-2021BAX023853

PATIENT
  Age: 47 Year
  Sex: Male
  Weight: 51.4 kg

DRUGS (16)
  1. AIDASHENG [Suspect]
     Active Substance: EPIRUBICIN HYDROCHLORIDE
     Dosage: DOSE RE?INTRODUCED; AIDASHENG + 0.9% SODIUM CHLORIDE
     Route: 041
  2. 0.9% SODIUM CHLORIDE INJECTION [Suspect]
     Active Substance: SODIUM CHLORIDE
     Dosage: CYCLOPHOSPHAMIDE 1000 MG + 0.9% SODIUM CHLORIDE 500 ML
     Route: 041
     Dates: start: 20210720, end: 20210720
  3. VINCRISTINE SULFATE. [Suspect]
     Active Substance: VINCRISTINE SULFATE
     Dosage: DOSE RE?INTRODUCED; VINCRISTINE SULFATE + 0.9% SODIUM CHLORIDE.
     Route: 041
  4. ENDOXAN [Suspect]
     Active Substance: CYCLOPHOSPHAMIDE
     Indication: LYMPHOMA
     Dosage: CYCLOPHOSPHAMIDE 1000 MG + 0.9% SODIUM CHLORIDE 500 ML.
     Route: 041
     Dates: start: 20210720, end: 20210720
  5. ENDOXAN [Suspect]
     Active Substance: CYCLOPHOSPHAMIDE
     Dosage: DOSE RE?INTRODUCED; CYCLOPHOSPHAMIDE + 0.9% SODIUM CHLORIDE.
     Route: 041
  6. 0.9% SODIUM CHLORIDE INJECTION [Suspect]
     Active Substance: SODIUM CHLORIDE
     Indication: MEDICATION DILUTION
     Dosage: AIDASHENG 20 MG + 0.9% SODIUM CHLORIDE 100 ML.
     Route: 041
     Dates: start: 20210716, end: 20210719
  7. 0.9% SODIUM CHLORIDE INJECTION [Suspect]
     Active Substance: SODIUM CHLORIDE
     Dosage: DOSE RE?INTRODUCED; 0.9% SODIUM CHLORIDE + ETOPOSIDE
     Route: 041
  8. 0.9% SODIUM CHLORIDE INJECTION [Suspect]
     Active Substance: SODIUM CHLORIDE
     Dosage: DOSE RE?INTRODUCED; 0.9% SODIUM CHLORIDE + VINCRISTINE SULFATE
     Route: 041
  9. AIDASHENG [Suspect]
     Active Substance: EPIRUBICIN HYDROCHLORIDE
     Indication: LYMPHOMA
     Dosage: AIDASHENG 20 MG + 0.9% SODIUM CHLORIDE 100 ML
     Route: 041
     Dates: start: 20210716, end: 20210719
  10. 0.9% SODIUM CHLORIDE INJECTION [Suspect]
     Active Substance: SODIUM CHLORIDE
     Dosage: DOSE RE?INTRODUCED; 0.9% SODIUM CHLORIDE + AIDASHENG
     Route: 041
  11. ETOPOSIDE. [Suspect]
     Active Substance: ETOPOSIDE
     Dosage: DOSE RE?INTRODUCED; ETOPOSIDE + 0.9% SODIUM CHLORIDE.
     Route: 041
  12. 0.9% SODIUM CHLORIDE INJECTION [Suspect]
     Active Substance: SODIUM CHLORIDE
     Dosage: VINCRISTINE SULFATE FOR 0.6 MG + 0.9% SODIUM CHLORIDE (PLASTIC BOTTLE) 180 MG.
     Route: 041
     Dates: start: 20210716, end: 20210719
  13. 0.9% SODIUM CHLORIDE INJECTION [Suspect]
     Active Substance: SODIUM CHLORIDE
     Dosage: ETOPOSIDE 0.07 G + 0.9% SODIUM CHLORIDE 250 ML.
     Route: 041
     Dates: start: 20210716, end: 20210719
  14. VINCRISTINE SULFATE. [Suspect]
     Active Substance: VINCRISTINE SULFATE
     Indication: LYMPHOMA
     Dosage: VINCRISTINE SULFATE 0.6 MG + 0.9% SODIUM CHLORIDE (PLASTIC BOTTLE) 180 MG
     Route: 041
     Dates: start: 20210716, end: 20210719
  15. ETOPOSIDE. [Suspect]
     Active Substance: ETOPOSIDE
     Indication: LYMPHOMA
     Dosage: ETOPOSIDE INJECTION 0.07 G + 0.9% SODIUM CHLORIDE 250 ML
     Route: 041
     Dates: start: 20210716, end: 20210719
  16. 0.9% SODIUM CHLORIDE INJECTION [Suspect]
     Active Substance: SODIUM CHLORIDE
     Dosage: DOSE RE?INTRODUCED; 0.9% SODIUM CHLORIDE + CYCLOPHOSPHAMIDE
     Route: 041

REACTIONS (1)
  - Myelosuppression [Recovering/Resolving]

NARRATIVE: CASE EVENT DATE: 20210724
